FAERS Safety Report 4585888-6 (Version None)
Quarter: 2005Q1

REPORT INFORMATION
  Report Type: 
  Country: None (occurrence: None)
  Receive Date: 20050214
  Receipt Date: 20050203
  Transmission Date: 20050727
  Serious: Yes (Death)
  Sender: FDA-Public Use
  Company Number: BUS-022005-007

PATIENT
  Age: 45 Year
  Sex: Male

DRUGS (5)
  1. BUSULFEX [Suspect]
     Indication: ACUTE MYELOID LEUKAEMIA
     Dosage: 188MG/DAY (47MG/DOSE X 4 TIMES)-IV
     Route: 042
     Dates: start: 20031216, end: 20031219
  2. CYCLOPHOSPHAMIDE [Concomitant]
  3. PHENYTOIN [Concomitant]
  4. ALLOPURINOL [Concomitant]
  5. ANTIFUNGAL AGENTS [Concomitant]

REACTIONS (5)
  - BONE MARROW TRANSPLANT [None]
  - FEBRILE NEUTROPENIA [None]
  - HYPOTENSION [None]
  - SEPTIC SHOCK [None]
  - SHOCK [None]
